FAERS Safety Report 8710711 (Version 4)
Quarter: 2012Q4

REPORT INFORMATION
  Report Type: 
  Country: US (occurrence: US)
  Receive Date: 20120807
  Receipt Date: 20121105
  Transmission Date: 20130627
  Serious: No
  Sender: FDA-Public Use
  Company Number: US-PFIZER INC-2012189179

PATIENT
  Sex: Female

DRUGS (5)
  1. AROMASIN [Suspect]
     Dosage: UNK
     Dates: start: 20120620, end: 20120807
  2. VITAMIN D [Concomitant]
  3. B12 [Concomitant]
  4. NAPROSYN [Concomitant]
  5. CALCIUM [Concomitant]

REACTIONS (6)
  - Herpes zoster [Recovering/Resolving]
  - Arthritis [Unknown]
  - Liver function test abnormal [Recovered/Resolved]
  - Oropharyngeal pain [Unknown]
  - Alopecia [Unknown]
  - Fatigue [Unknown]
